FAERS Safety Report 5500749-3 (Version None)
Quarter: 2007Q4

REPORT INFORMATION
  Report Type: 
  Country: None (occurrence: None)
  Receive Date: 20071029
  Receipt Date: 20071018
  Transmission Date: 20080405
  Serious: Yes (Hospitalization, Other)
  Sender: FDA-Public Use
  Company Number: US-JNJFOC-20070801592

PATIENT
  Age: 3 Year
  Sex: Female

DRUGS (4)
  1. REMICADE [Suspect]
     Indication: COLITIS ULCERATIVE
     Route: 042
  2. PREDNISONE [Concomitant]
     Indication: INFLAMMATORY BOWEL DISEASE
  3. SOLU-MEDROL [Concomitant]
     Indication: INFLAMMATORY BOWEL DISEASE
  4. COLAZOL [Concomitant]
     Indication: INFLAMMATORY BOWEL DISEASE

REACTIONS (1)
  - NEPHROLITHIASIS [None]
